FAERS Safety Report 10163553 (Version 1)
Quarter: 2014Q2

REPORT INFORMATION
  Report Type: Report from Study
  Country: CA (occurrence: CA)
  Receive Date: 20140509
  Receipt Date: 20140509
  Transmission Date: 20141212
  Serious: Yes (Hospitalization)
  Sender: FDA-Public Use
  Company Number: CA-ABBVIE-14P-028-1235793-00

PATIENT
  Age: 32 Year
  Sex: Female

DRUGS (3)
  1. MAVIK [Suspect]
     Indication: HYPERTENSION
     Dates: start: 20140303, end: 20140419
  2. MAVIK [Suspect]
     Dates: start: 20140422
  3. METFORMIN [Concomitant]
     Indication: PRODUCT USED FOR UNKNOWN INDICATION

REACTIONS (10)
  - Metrorrhagia [Recovered/Resolved]
  - Premenstrual headache [Recovering/Resolving]
  - Malaise [Recovering/Resolving]
  - Abdominal pain upper [Recovering/Resolving]
  - Presyncope [Recovering/Resolving]
  - Red blood cell count decreased [Recovering/Resolving]
  - Hypotension [Recovering/Resolving]
  - Dizziness postural [Unknown]
  - Peripheral swelling [Unknown]
  - Ovarian cyst [Unknown]
